FAERS Safety Report 21957474 (Version 1)
Quarter: 2023Q1

REPORT INFORMATION
  Report Type: Spontaneous
  Country: US (occurrence: US)
  Receive Date: 20230206
  Receipt Date: 20230206
  Transmission Date: 20230418
  Serious: No
  Sender: FDA-Public Use
  Company Number: US-PFIZER INC-202101511100

PATIENT
  Age: 61 Year
  Sex: Male

DRUGS (1)
  1. XELJANZ XR [Suspect]
     Active Substance: TOFACITINIB CITRATE
     Dosage: 11 MG, DAILY (TAKE 1 TABLET (11 MG TOTAL) BY MOUTH ONCE DAILY)
     Route: 048

REACTIONS (2)
  - Product prescribing issue [Unknown]
  - Cognitive disorder [Unknown]
